FAERS Safety Report 4884364-0 (Version None)
Quarter: 2006Q1

REPORT INFORMATION
  Report Type: 
  Country: None (occurrence: None)
  Receive Date: 20060117
  Receipt Date: 20060117
  Transmission Date: 20060701
  Serious: Yes (Hospitalization)
  Sender: FDA-Public Use
  Company Number: None

PATIENT
  Age: 74 Year
  Sex: Female

DRUGS (4)
  1. TEQUIN [Suspect]
     Indication: INFECTION
  2. FOSAMAX [Concomitant]
  3. LOVENOX [Concomitant]
  4. COUMADIN [Concomitant]

REACTIONS (3)
  - HYPERGLYCAEMIA [None]
  - HYPOVOLAEMIA [None]
  - RENAL FAILURE [None]
